FAERS Safety Report 13259236 (Version 1)
Quarter: 2017Q1

REPORT INFORMATION
  Report Type: Report from Study
  Country: None (occurrence: US)
  Receive Date: 20170222
  Receipt Date: 20170222
  Transmission Date: 20170428
  Serious: Yes (Hospitalization)
  Sender: FDA-Public Use
  Company Number: US-ABBVIE-16K-163-1739310-00

PATIENT
  Sex: Male

DRUGS (4)
  1. HUMIRA [Suspect]
     Active Substance: ADALIMUMAB
     Route: 058
     Dates: start: 201609, end: 201610
  2. HUMIRA [Suspect]
     Active Substance: ADALIMUMAB
     Indication: COLITIS ULCERATIVE
     Dosage: STANDARD TITRATION DAY 1
     Route: 058
     Dates: start: 201608, end: 201608
  3. HUMIRA [Suspect]
     Active Substance: ADALIMUMAB
     Route: 058
     Dates: start: 201610, end: 201701
  4. HUMIRA [Suspect]
     Active Substance: ADALIMUMAB
     Dosage: DAY 15
     Route: 058
     Dates: start: 2016, end: 2016

REACTIONS (10)
  - Diarrhoea haemorrhagic [Unknown]
  - Diarrhoea [Not Recovered/Not Resolved]
  - Drug ineffective [Unknown]
  - Abdominal pain [Not Recovered/Not Resolved]
  - Intestinal obstruction [Unknown]
  - Activities of daily living impaired [Unknown]
  - Decreased appetite [Unknown]
  - Pneumonia [Unknown]
  - Frequent bowel movements [Unknown]
  - Corona virus infection [Unknown]

NARRATIVE: CASE EVENT DATE: 2016
